FAERS Safety Report 10145701 (Version 1)
Quarter: 2014Q2

REPORT INFORMATION
  Report Type: Spontaneous
  Country: US (occurrence: None)
  Receive Date: 20140430
  Receipt Date: 20140430
  Transmission Date: 20141212
  Serious: Yes (Hospitalization)
  Sender: FDA-Public Use
  Company Number: None

PATIENT
  Age: 77 Year
  Sex: Male

DRUGS (11)
  1. WARFARIN [Suspect]
     Indication: ATRIAL FIBRILLATION
     Route: 048
     Dates: start: 20131119
  2. ARTIFICIAL TEARS [Concomitant]
  3. ASA [Concomitant]
  4. CALCIUM ACETATE [Concomitant]
  5. CALCIUM + VITAMIN D [Concomitant]
  6. DILTIAZEM [Concomitant]
  7. EZETIMIBE [Concomitant]
  8. MAGNESIUM OXIDE [Concomitant]
  9. METOPROLOL [Concomitant]
  10. PYRIDOXINE [Concomitant]
  11. SIMVASTATIN [Concomitant]

REACTIONS (2)
  - Haematuria [None]
  - International normalised ratio increased [None]
